FAERS Safety Report 7715548-1 (Version None)
Quarter: 2011Q3

REPORT INFORMATION
  Report Type: 
  Country: None (occurrence: None)
  Receive Date: 20110829
  Receipt Date: 20110822
  Transmission Date: 20111222
  Serious: Yes (Other)
  Sender: FDA-Public Use
  Company Number: CZ-JNJFOC-20110810482

PATIENT
  Sex: Female

DRUGS (1)
  1. REMICADE [Suspect]
     Indication: RHEUMATOID ARTHRITIS
     Route: 042
     Dates: start: 20110601

REACTIONS (6)
  - HEARING IMPAIRED [None]
  - HYPERSENSITIVITY [None]
  - MIGRAINE [None]
  - SOMNOLENCE [None]
  - HYPERTENSION [None]
  - JOINT SWELLING [None]
